FAERS Safety Report 6599532-X (Version None)
Quarter: 2010Q1

REPORT INFORMATION
  Report Type: 
  Country: None (occurrence: None)
  Receive Date: 20100224
  Receipt Date: 20100218
  Transmission Date: 20100710
  Serious: Yes (Hospitalization)
  Sender: FDA-Public Use
  Company Number: US-ROCHE-682770

PATIENT
  Sex: Female
  Weight: 90.7 kg

DRUGS (20)
  1. TOCILIZUMAB [Suspect]
     Indication: RHEUMATOID ARTHRITIS
     Dosage: FORM : INFUSION, LAST DOSE PRIOR TO SAE: 23 DECEMBER 2009.
     Route: 042
     Dates: start: 20060201
  2. METHOTREXATE [Concomitant]
     Dates: start: 20091009
  3. SINGULAIR [Concomitant]
     Dates: start: 19990101
  4. FOLIC ACID [Concomitant]
     Dosage: FREQUENCY:DAILY
     Dates: start: 20020227
  5. COMBIVENT [Concomitant]
     Dosage: DOSE 2 PUFFS
     Dates: start: 19990101
  6. COREG [Concomitant]
     Dates: start: 20060628
  7. LISINOPRIL [Concomitant]
     Dosage: FREQUENCY:DAILY
     Dates: start: 20060426
  8. LISINOPRIL [Concomitant]
     Dosage: FREQUENCY: DAILY
     Dates: start: 20091211
  9. ZETIA [Concomitant]
     Dosage: FREQUENCY:DAILY
     Dates: start: 20060628
  10. LORAZEPAM [Concomitant]
     Dates: start: 20030101
  11. LOVASTATIN [Concomitant]
     Dates: start: 20061113
  12. ASPIRIN [Concomitant]
     Dosage: FREQUENCY:DAILY
     Dates: start: 20061113
  13. OMEPRAZOLE [Concomitant]
     Dates: start: 20070601
  14. KLOR-CON [Concomitant]
     Dates: start: 20070601
  15. LASIX [Concomitant]
     Dosage: DOSAGE REGIMEN: 40 MG 2 QD
     Dates: start: 20070201
  16. LASIX [Concomitant]
     Dates: start: 20070601
  17. SPIRIVA [Concomitant]
     Dosage: DRUG: SPIORVA INHALER.TDD: 1 INH PRN
     Dates: start: 20071201
  18. FISH OIL [Concomitant]
     Dates: start: 20010101
  19. MULTI-VITAMIN [Concomitant]
     Dates: start: 20010101
  20. VITAMIN E [Concomitant]
     Dates: start: 20010101

REACTIONS (1)
  - AORTIC ANEURYSM [None]
